FAERS Safety Report 5398484-8 (Version None)
Quarter: 2007Q3

REPORT INFORMATION
  Report Type: 
  Country: None (occurrence: None)
  Receive Date: 20070726
  Receipt Date: 20070223
  Transmission Date: 20080115
  Serious: No
  Sender: FDA-Public Use
  Company Number: US-AMGEN-KDL212835

PATIENT
  Sex: Male
  Weight: 79.9 kg

DRUGS (2)
  1. PROCRIT [Suspect]
     Indication: ANAEMIA
     Dates: start: 20070116
  2. UNSPECIFIED MEDICATION [Concomitant]

REACTIONS (1)
  - OEDEMA PERIPHERAL [None]
